FAERS Safety Report 9109044 (Version 4)
Quarter: 2013Q4

REPORT INFORMATION
  Report Type: Spontaneous
  Country: US (occurrence: US)
  Receive Date: 20130222
  Receipt Date: 20131002
  Transmission Date: 20140711
  Serious: Yes (Hospitalization, Disabling)
  Sender: FDA-Public Use
  Company Number: US-GLAXOSMITHKLINE-A1012054A

PATIENT
  Age: 37 Year
  Sex: Female

DRUGS (5)
  1. ZOFRAN [Suspect]
     Indication: INFLUENZA
     Dosage: 4MG PER DAY
     Route: 048
     Dates: start: 20120311, end: 201205
  2. MORPHINE [Suspect]
     Indication: RAYNAUD^S PHENOMENON
     Route: 065
  3. PREDNISONE [Suspect]
     Indication: RAYNAUD^S PHENOMENON
     Route: 042
  4. PRENATAL VITAMIN [Concomitant]
  5. UNKNOWN MEDICATION [Concomitant]

REACTIONS (18)
  - Disability [Recovered/Resolved]
  - Neuropathy peripheral [Not Recovered/Not Resolved]
  - Erythromelalgia [Unknown]
  - Local swelling [Not Recovered/Not Resolved]
  - Local swelling [Unknown]
  - Pain in extremity [Not Recovered/Not Resolved]
  - Pain in extremity [Recovering/Resolving]
  - Skin lesion [Unknown]
  - Burning sensation [Unknown]
  - Gait disturbance [Not Recovered/Not Resolved]
  - Crying [Unknown]
  - Pain [Unknown]
  - Sleep disorder [Unknown]
  - Live birth [Unknown]
  - Exposure during pregnancy [Unknown]
  - Vitamin D decreased [Unknown]
  - Raynaud^s phenomenon [Unknown]
  - Wound secretion [Unknown]
